FAERS Safety Report 4415647-6 (Version None)
Quarter: 2004Q3

REPORT INFORMATION
  Report Type: 
  Country: None (occurrence: None)
  Receive Date: 20040730
  Receipt Date: 20040723
  Transmission Date: 20050211
  Serious: Yes (Hospitalization)
  Sender: FDA-Public Use
  Company Number: STA-AE-04-MTX-326

PATIENT
  Age: 54 Year
  Sex: Female

DRUGS (14)
  1. METHOTREXATE [Suspect]
     Indication: RHEUMATOID ARTHRITIS
     Dosage: 17.5 MG 1X PER 1 WK, ORAL
     Route: 048
     Dates: start: 19930901
  2. PREDNISONE [Suspect]
     Dosage: 10 MG 1X PER 1 DAY, ORAL
     Route: 048
     Dates: start: 19780901
  3. REMICADE [Suspect]
     Indication: RHEUMATOID ARTHRITIS
     Dosage: 500 MG 1X PER 5 WK, INTRAVENOUS
     Route: 042
     Dates: start: 20020301
  4. SULINDAC [Concomitant]
  5. FOLIC ACID [Concomitant]
  6. LOTENSIN [Concomitant]
  7. EFFEXOR XR [Concomitant]
  8. SINGULAIR [Concomitant]
  9. TRAZODONE HCL [Concomitant]
  10. DOCUSATE (DOCUSATE) [Concomitant]
  11. ALBUTEROL [Concomitant]
  12. PERCOCET [Concomitant]
  13. MORPHINE SULFATE [Concomitant]
  14. ASPIRIN [Concomitant]

REACTIONS (16)
  - ADRENOCORTICAL INSUFFICIENCY ACUTE [None]
  - CUSHINGOID [None]
  - DECREASED APPETITE [None]
  - DEHYDRATION [None]
  - DYSKINESIA [None]
  - FATIGUE [None]
  - HYPERHIDROSIS [None]
  - IMMUNOSUPPRESSION [None]
  - INFECTION MASKED [None]
  - LEUKOCYTOSIS [None]
  - MARKEDLY REDUCED DIETARY INTAKE [None]
  - PYREXIA [None]
  - RENAL FAILURE ACUTE [None]
  - SEPSIS [None]
  - SOMNOLENCE [None]
  - TREMOR [None]
